FAERS Safety Report 8579335-7 (Version None)
Quarter: 2012Q3

REPORT INFORMATION
  Report Type: 
  Country: None (occurrence: None)
  Receive Date: 20120808
  Receipt Date: 20120724
  Transmission Date: 20120928
  Serious: Yes (Other)
  Sender: FDA-Public Use
  Company Number: SV-ROCHE-793293

PATIENT
  Sex: Female

DRUGS (2)
  1. DIANE-35 [Suspect]
     Indication: CONTRACEPTION
     Route: 048
  2. ISOTRETINOIN [Suspect]
     Indication: ACNE
     Route: 048

REACTIONS (2)
  - PREGNANCY [None]
  - GASTRITIS [None]
